FAERS Safety Report 17528212 (Version 2)
Quarter: 2020Q1

REPORT INFORMATION
  Report Type: Spontaneous
  Country: US (occurrence: US)
  Receive Date: 20200311
  Receipt Date: 20200325
  Transmission Date: 20200409
  Serious: No
  Sender: FDA-Public Use
  Company Number: US-ALEXION PHARMACEUTICALS INC.-A202003186

PATIENT
  Age: 65 Year
  Sex: Female

DRUGS (2)
  1. ULTOMIRIS [Suspect]
     Active Substance: RAVULIZUMAB-CWVZ
     Dosage: UNK
     Route: 065
  2. ULTOMIRIS [Suspect]
     Active Substance: RAVULIZUMAB-CWVZ
     Indication: PAROXYSMAL NOCTURNAL HAEMOGLOBINURIA
     Dosage: 3300 MG, UNK
     Route: 042

REACTIONS (6)
  - Pain in extremity [Recovering/Resolving]
  - Pyrexia [Unknown]
  - Myalgia [Unknown]
  - Swelling [Unknown]
  - Back pain [Recovering/Resolving]
  - Hypertension [Recovering/Resolving]
